FAERS Safety Report 5285579-2 (Version None)
Quarter: 2007Q1

REPORT INFORMATION
  Report Type: 
  Country: None (occurrence: None)
  Receive Date: 20061229
  Receipt Date: 20061012
  Transmission Date: 20070707
  Serious: Yes (Other)
  Sender: FDA-Public Use
  Company Number: 2006UW19804

PATIENT
  Age: 60 Year
  Sex: Female
  Weight: 79.378 kg

DRUGS (2)
  1. CRESTOR [Suspect]
     Indication: BLOOD CHOLESTEROL INCREASED
     Dosage: 10 MG PO
     Route: 048
     Dates: start: 20060801, end: 20060801
  2. ALTACE [Concomitant]

REACTIONS (3)
  - APHASIA [None]
  - CONSTIPATION [None]
  - DIZZINESS [None]
